FAERS Safety Report 8529415-7 (Version None)
Quarter: 2012Q3

REPORT INFORMATION
  Report Type: 
  Country: None (occurrence: None)
  Receive Date: 20120723
  Receipt Date: 20120711
  Transmission Date: 20120928
  Serious: No
  Sender: FDA-Public Use
  Company Number: US-009507513-1205USA02347

PATIENT

DRUGS (5)
  1. MK-9355 [Concomitant]
     Route: 048
  2. SYNTHROID [Concomitant]
  3. FOSAMAX [Suspect]
     Indication: OSTEOPOROSIS
     Dosage: UNK
     Route: 048
     Dates: start: 20050101, end: 20100101
  4. TRILIPIX [Concomitant]
  5. ZOCOR [Concomitant]
     Dosage: UNK
     Route: 048

REACTIONS (2)
  - PAIN IN EXTREMITY [None]
  - ARTHRALGIA [None]
